FAERS Safety Report 7496934-4 (Version None)
Quarter: 2011Q2

REPORT INFORMATION
  Report Type: 
  Country: None (occurrence: None)
  Receive Date: 20110523
  Receipt Date: 20110513
  Transmission Date: 20111010
  Serious: Yes (Hospitalization)
  Sender: FDA-Public Use
  Company Number: AU-MERCK-1105USA02368

PATIENT
  Age: 63 Year
  Sex: Male
  Weight: 137 kg

DRUGS (9)
  1. FUROSEMIDE [Concomitant]
     Route: 065
  2. NITROGLYCERIN [Concomitant]
     Route: 065
  3. PERINDOPRIL [Concomitant]
     Route: 065
  4. ZOCOR [Suspect]
     Route: 048
     Dates: end: 20100819
  5. CARVEDILOL [Concomitant]
     Route: 065
  6. ASPIRIN [Concomitant]
     Route: 065
  7. AMIODARONE HCL [Suspect]
     Route: 065
     Dates: start: 20070115, end: 20100825
  8. WARFARIN SODIUM [Concomitant]
     Route: 065
  9. MEXILETINE HYDROCHLORIDE [Suspect]
     Route: 065

REACTIONS (4)
  - JAUNDICE [None]
  - DRUG INTERACTION [None]
  - CARDIAC FAILURE [None]
  - LIVER INJURY [None]
